FAERS Safety Report 6553841-9 (Version None)
Quarter: 2010Q1

REPORT INFORMATION
  Report Type: 
  Country: None (occurrence: None)
  Receive Date: 20100127
  Receipt Date: 20100120
  Transmission Date: 20100710
  Serious: Yes (Other)
  Sender: FDA-Public Use
  Company Number: US-BAYER-201012017NA

PATIENT
  Age: 19 Year
  Sex: Female

DRUGS (2)
  1. YAZ [Suspect]
     Indication: MUSCLE SPASMS
     Dosage: UNIT DOSE: 1 DF
     Dates: start: 20090101, end: 20091001
  2. YAZ [Suspect]
     Dosage: UNIT DOSE: 1 DF
     Dates: start: 20100116

REACTIONS (1)
  - VAGINAL HAEMORRHAGE [None]
